FAERS Safety Report 9733493 (Version 1)
Quarter: 2013Q4

REPORT INFORMATION
  Report Type: Spontaneous
  Country: US (occurrence: US)
  Receive Date: 20131205
  Receipt Date: 20131205
  Transmission Date: 20140711
  Serious: No
  Sender: FDA-Public Use
  Company Number: US-BAYER-2013-145570

PATIENT
  Sex: Female

DRUGS (1)
  1. CLIMARA [Suspect]
     Dosage: 0.05 MG, ONCE
     Route: 062

REACTIONS (5)
  - Agitation [None]
  - Poor quality sleep [None]
  - Night sweats [None]
  - Mood altered [None]
  - Product adhesion issue [None]
